FAERS Safety Report 8094006-1 (Version None)
Quarter: 2012Q1

REPORT INFORMATION
  Report Type: 
  Country: None (occurrence: None)
  Receive Date: 20120131
  Receipt Date: 20120126
  Transmission Date: 20120608
  Serious: No
  Sender: FDA-Public Use
  Company Number: PHEH2011US010984

PATIENT
  Sex: Male

DRUGS (4)
  1. TASIGNA [Suspect]
     Indication: CHRONIC MYELOID LEUKAEMIA
     Dosage: 300 MG, BID
     Route: 048
     Dates: start: 20111001
  2. ONDANSETRON [Concomitant]
     Dosage: UNK UKN, UNK
  3. OXYCODONE HCL [Concomitant]
     Dosage: UNK UKN, UNK
  4. METHADONE HCL [Concomitant]
     Dosage: UNK UKN, UNK

REACTIONS (2)
  - RASH [None]
  - MADAROSIS [None]
